FAERS Safety Report 5613176-5 (Version None)
Quarter: 2008Q1

REPORT INFORMATION
  Report Type: 
  Country: None (occurrence: None)
  Receive Date: 20080129
  Receipt Date: 20080116
  Transmission Date: 20080703
  Serious: Yes (Hospitalization)
  Sender: FDA-Public Use
  Company Number: TCI2007A07095

PATIENT
  Age: 70 Year
  Sex: Male

DRUGS (9)
  1. ACTOS [Suspect]
     Indication: DIABETES MELLITUS
     Dosage: 30 MG (30 MG, 1 IN 1 D) PER ORAL
     Route: 048
     Dates: start: 20071024
  2. BASEN TABLETS 0.2 (VOGLIBOSE) [Concomitant]
  3. NIVADIL (NILVADIPINE) [Concomitant]
  4. TICLOPIDINE HYDROCHLORIDE [Concomitant]
  5. SALUMOSIN (NICERGOLINE) [Concomitant]
  6. ZADITEN [Concomitant]
  7. AMARYL [Concomitant]
  8. ATARAX [Concomitant]
  9. DIACORT (DIFLORASONE DIACETATE) [Concomitant]

REACTIONS (7)
  - APATHY [None]
  - BLUNTED AFFECT [None]
  - CEREBRAL INFARCTION [None]
  - DYSLALIA [None]
  - HALLUCINATION, AUDITORY [None]
  - HEMIPARESIS [None]
  - PERSECUTORY DELUSION [None]
